FAERS Safety Report 5755477-6 (Version None)
Quarter: 2008Q2

REPORT INFORMATION
  Report Type: 
  Country: None (occurrence: None)
  Receive Date: 20080530
  Receipt Date: 20080530
  Transmission Date: 20081010
  Serious: Yes (Hospitalization)
  Sender: FDA-Public Use
  Company Number: None

PATIENT
  Sex: Female
  Weight: 72.8 kg

DRUGS (4)
  1. ERBITUX [Suspect]
     Dosage: 920 MG
  2. BENADRYL [Concomitant]
  3. MORPHINE [Concomitant]
  4. PHENERGAN [Concomitant]

REACTIONS (8)
  - ABDOMINAL PAIN LOWER [None]
  - CONDITION AGGRAVATED [None]
  - HAEMATOCRIT DECREASED [None]
  - HAEMOGLOBIN DECREASED [None]
  - LYMPHADENOPATHY [None]
  - NAUSEA [None]
  - PYREXIA [None]
  - VOMITING [None]
